FAERS Safety Report 20220824 (Version 1)
Quarter: 2021Q4

REPORT INFORMATION
  Report Type: Spontaneous
  Country: CN (occurrence: CN)
  Receive Date: 20211223
  Receipt Date: 20211223
  Transmission Date: 20220303
  Serious: Yes (Hospitalization)
  Sender: FDA-Public Use
  Company Number: CN-JNJFOC-20211233609

PATIENT
  Age: 32 Year
  Sex: Male
  Weight: 70 kg

DRUGS (4)
  1. RISPERDAL [Suspect]
     Active Substance: RISPERIDONE
     Indication: Psychotic symptom
     Dosage: 2MG IN THE MORNING? 4MG IN THE EVENING
     Route: 048
     Dates: start: 20210817, end: 20211213
  2. RISPERDAL [Suspect]
     Active Substance: RISPERIDONE
     Dosage: 2MG TAKING AT MORNING? 4MG TAKING IT AT EVENING
     Route: 048
     Dates: start: 20210817, end: 20211213
  3. CLOZAPINE [Suspect]
     Active Substance: CLOZAPINE
     Indication: Psychotic symptom
     Dosage: 50 MG IN THE MORNING?100 MG IN THE EVENING
     Route: 048
     Dates: start: 20211018, end: 20211213
  4. CLOZAPINE [Suspect]
     Active Substance: CLOZAPINE
     Dosage: 50 MG IN THE MORNING?100 MG IN THE EVENING
     Route: 048
     Dates: start: 20211018, end: 20211213

REACTIONS (5)
  - Gaze palsy [Recovering/Resolving]
  - Asthenia [Unknown]
  - Tremor [Unknown]
  - Dyskinesia [Unknown]
  - Dysphoria [Recovering/Resolving]

NARRATIVE: CASE EVENT DATE: 20211202
